FAERS Safety Report 4865945-7 (Version None)
Quarter: 2005Q4

REPORT INFORMATION
  Report Type: 
  Country: None (occurrence: None)
  Receive Date: 20051226
  Receipt Date: 20050623
  Transmission Date: 20060501
  Serious: Yes (Hospitalization)
  Sender: FDA-Public Use
  Company Number: PHHO2005FR10130

PATIENT
  Age: 55 Year
  Sex: Male

DRUGS (1)
  1. STI 571 VS IFN-ALPHA + CYTARABINE [Suspect]
     Indication: CHRONIC MYELOID LEUKAEMIA
     Dosage: 400 MG, QD
     Route: 048
     Dates: start: 20010717

REACTIONS (2)
  - BLADDER CANCER [None]
  - TUMOUR EXCISION [None]
